FAERS Safety Report 8104811-0 (Version None)
Quarter: 2012Q1

REPORT INFORMATION
  Report Type: 
  Country: None (occurrence: None)
  Receive Date: 20120201
  Receipt Date: 20120124
  Transmission Date: 20120608
  Serious: Yes (Hospitalization)
  Sender: FDA-Public Use
  Company Number: US-BAYER-2011-042796

PATIENT
  Age: 30 Year
  Sex: Female
  Weight: 86.168 kg

DRUGS (8)
  1. YAZ [Suspect]
     Dosage: UNK
     Route: 048
     Dates: start: 20071101
  2. ALPRAZOLAM [Concomitant]
     Dosage: UNK
     Dates: start: 20090101, end: 20100401
  3. AMBIEN [Concomitant]
     Dosage: UNK
     Dates: start: 20090501
  4. NEXIUM [Concomitant]
  5. YASMIN [Suspect]
     Dosage: UNK
     Route: 048
     Dates: start: 20060101, end: 20060601
  6. YAZ [Suspect]
     Dosage: UNK
     Route: 048
     Dates: start: 20080201, end: 20090501
  7. LOESTRIN 1.5/30 [Concomitant]
  8. CITALOPRAM HYDROBROMIDE [Concomitant]

REACTIONS (7)
  - INJURY [None]
  - EMOTIONAL DISTRESS [None]
  - ANXIETY [None]
  - BILIARY DYSKINESIA [None]
  - CHOLECYSTITIS CHRONIC [None]
  - GENERAL PHYSICAL HEALTH DETERIORATION [None]
  - PAIN [None]
